FAERS Safety Report 25947513 (Version 1)
Quarter: 2025Q4

REPORT INFORMATION
  Report Type: Report from Study
  Country: US (occurrence: US)
  Receive Date: 20251022
  Receipt Date: 20251022
  Transmission Date: 20260117
  Serious: Yes (Other)
  Sender: ALEXION PHARMACEUTICALS
  Company Number: US-AstraZeneca-CH-00973960A

PATIENT
  Sex: Female
  Weight: 94 kg

DRUGS (9)
  1. ACALABRUTINIB [Suspect]
     Active Substance: ACALABRUTINIB
     Indication: Lymphocytic lymphoma
     Dosage: 100 MILLIGRAM, BID
  2. GAZYVA [Concomitant]
     Active Substance: OBINUTUZUMAB
     Dosage: UNK
     Route: 065
  3. TYLENOL [Concomitant]
     Active Substance: ACETAMINOPHEN
     Dosage: UNK
     Route: 065
  4. VENCLEXTA [Concomitant]
     Active Substance: VENETOCLAX
     Dosage: UNK
     Route: 065
  5. XANAX [Concomitant]
     Active Substance: ALPRAZOLAM
     Dosage: UNK
     Route: 065
  6. VITAMINS [Concomitant]
     Active Substance: VITAMINS
     Dosage: UNK
     Route: 065
  7. FISH OIL [Concomitant]
     Active Substance: FISH OIL
     Dosage: UNK
     Route: 065
  8. LEVOBUPIVACAINE [Concomitant]
     Active Substance: LEVOBUPIVACAINE
     Dosage: UNK
     Route: 065
  9. ZINC [Concomitant]
     Active Substance: ZINC
     Dosage: UNK
     Route: 065

REACTIONS (1)
  - Gastrointestinal disorder [Recovering/Resolving]
